FAERS Safety Report 11124414 (Version 1)
Quarter: 2015Q2

REPORT INFORMATION
  Report Type: Report from Study
  Country: BR (occurrence: BR)
  Receive Date: 20150520
  Receipt Date: 20150520
  Transmission Date: 20150821
  Serious: Yes (Death)
  Sender: FDA-Public Use
  Company Number: BR-BIOGENIDEC-2015BI024610

PATIENT
  Age: 43 Year
  Sex: Male
  Weight: 60 kg

DRUGS (3)
  1. AVONEX [Suspect]
     Active Substance: INTERFERON BETA-1A
     Indication: MULTIPLE SCLEROSIS
     Route: 030
     Dates: start: 20141024, end: 20150509
  2. ATENOLOL. [Concomitant]
     Active Substance: ATENOLOL
  3. LOSARTAN [Concomitant]
     Active Substance: LOSARTAN

REACTIONS (7)
  - Tremor [Unknown]
  - Diabetes mellitus [Fatal]
  - Multiple sclerosis [Fatal]
  - Headache [Unknown]
  - Prescribed underdose [Unknown]
  - Hypertension [Fatal]
  - Arthralgia [Unknown]

NARRATIVE: CASE EVENT DATE: 201502
